FAERS Safety Report 21831412 (Version 2)
Quarter: 2023Q1

REPORT INFORMATION
  Report Type: Report from Study
  Country: BE (occurrence: None)
  Receive Date: 20230106
  Receipt Date: 20230112
  Transmission Date: 20230418
  Serious: Yes (Hospitalization)
  Sender: FDA-Public Use
  Company Number: BE-ROCHE-3255669

PATIENT
  Age: 50 Year
  Sex: Male
  Weight: 58 kg

DRUGS (36)
  1. MOSUNETUZUMAB [Suspect]
     Active Substance: MOSUNETUZUMAB
     Indication: B-cell lymphoma
     Dosage: ON 19/DEC/2022, HE RECEIVED MOST RECENT DOSE OF MOSUNETUZUMAB PRIOR TO SAE.
     Route: 058
     Dates: start: 20221206
  2. MOSUNETUZUMAB [Suspect]
     Active Substance: MOSUNETUZUMAB
     Route: 058
     Dates: start: 20221219
  3. POLATUZUMAB VEDOTIN [Suspect]
     Active Substance: POLATUZUMAB VEDOTIN
     Indication: B-cell lymphoma
     Dosage: ON 06/DEC/2022, HE RECEIVED HIS MOST RECENT DOSE (104.40 MG) OF POLATUZUMAB PRIOR TO SAE.
     Route: 042
     Dates: start: 20221017
  4. RITUXIMAB [Suspect]
     Active Substance: RITUXIMAB
     Indication: B-cell lymphoma
     Dosage: ON 07/NOV/2022, HE RECEIVED HIS MOST RECENT DOSE (675 MG) OF RITUXIMAB PRIOR TO SAE.
     Route: 041
     Dates: start: 20221017
  5. ACYCLOVIR [Concomitant]
     Active Substance: ACYCLOVIR
     Indication: Infection prophylaxis
     Route: 048
     Dates: start: 202109
  6. ALLOPURINOL [Concomitant]
     Active Substance: ALLOPURINOL
     Route: 048
     Dates: start: 20220927
  7. BEFACT FORTE [Concomitant]
     Indication: Peripheral sensory neuropathy
     Route: 048
     Dates: start: 202203
  8. NADROPARIN CALCIUM [Concomitant]
     Active Substance: NADROPARIN CALCIUM
     Indication: Thrombosis
     Route: 058
     Dates: start: 20220719
  9. MOVICOL [Concomitant]
     Active Substance: POLYETHYLENE GLYCOL 3350\POTASSIUM CHLORIDE\SODIUM BICARBONATE\SODIUM CHLORIDE
     Indication: Constipation
     Route: 048
     Dates: start: 202209
  10. MORPHINE SULFATE [Concomitant]
     Active Substance: MORPHINE SULFATE
     Indication: Abdominal pain
     Route: 048
     Dates: start: 20220927, end: 20221219
  11. MORPHINE SULFATE [Concomitant]
     Active Substance: MORPHINE SULFATE
     Indication: Back pain
  12. ACETAMINOPHEN [Concomitant]
     Active Substance: ACETAMINOPHEN
     Indication: Abdominal pain
     Route: 048
     Dates: start: 202109
  13. ACETAMINOPHEN [Concomitant]
     Active Substance: ACETAMINOPHEN
     Indication: Back pain
  14. PRAZEPAM [Concomitant]
     Active Substance: PRAZEPAM
     Indication: Anxiety
     Route: 048
     Dates: start: 202112
  15. SULFAMETHOXAZOLE\TRIMETHOPRIM [Concomitant]
     Active Substance: SULFAMETHOXAZOLE\TRIMETHOPRIM
     Indication: Infection
     Route: 048
     Dates: start: 202109
  16. ESOMEPRAZOLE [Concomitant]
     Active Substance: ESOMEPRAZOLE
     Indication: Abdominal pain upper
     Route: 048
     Dates: start: 202109
  17. NALOXONE HYDROCHLORIDE\OXYCODONE HYDROCHLORIDE [Concomitant]
     Active Substance: NALOXONE HYDROCHLORIDE\OXYCODONE HYDROCHLORIDE
     Indication: Abdominal pain
     Route: 048
     Dates: start: 20221020
  18. NALOXONE HYDROCHLORIDE\OXYCODONE HYDROCHLORIDE [Concomitant]
     Active Substance: NALOXONE HYDROCHLORIDE\OXYCODONE HYDROCHLORIDE
     Indication: Back pain
  19. MORPHINE [Concomitant]
     Active Substance: MORPHINE
     Indication: Abdominal pain
     Route: 058
     Dates: start: 20221128
  20. MORPHINE [Concomitant]
     Active Substance: MORPHINE
     Indication: Back pain
  21. MOTILIUM [Concomitant]
     Active Substance: DOMPERIDONE
     Indication: Nausea
     Dosage: 1 TABLET
     Route: 048
     Dates: start: 20221102
  22. ALIZAPRIDE HYDROCHLORIDE [Concomitant]
     Active Substance: ALIZAPRIDE HYDROCHLORIDE
     Indication: Nausea
     Route: 042
     Dates: start: 20221102
  23. CLARITHROMYCIN [Concomitant]
     Active Substance: CLARITHROMYCIN
     Indication: Pneumonia bacterial
     Route: 048
     Dates: start: 20221212, end: 20221214
  24. LYRICA [Concomitant]
     Active Substance: PREGABALIN
     Indication: Abdominal pain
     Route: 048
     Dates: start: 20221219
  25. LYRICA [Concomitant]
     Active Substance: PREGABALIN
     Indication: Neck pain
  26. ENOXAPARIN SODIUM [Concomitant]
     Active Substance: ENOXAPARIN SODIUM
     Route: 058
     Dates: start: 20221212, end: 20221213
  27. ENOXAPARIN SODIUM [Concomitant]
     Active Substance: ENOXAPARIN SODIUM
     Route: 058
     Dates: start: 20221227, end: 20230103
  28. PANTOPRAZOLE SODIUM [Concomitant]
     Active Substance: PANTOPRAZOLE SODIUM
     Indication: Abdominal pain upper
     Route: 048
     Dates: start: 20230109
  29. MAGNETOP [Concomitant]
     Indication: Hypomagnesaemia
     Dosage: 1 OTHER
     Route: 048
     Dates: start: 20221227, end: 20230104
  30. STEOVIT FORTE [Concomitant]
     Indication: Hypocalcaemia
     Dosage: 1 OTHER
     Route: 048
     Dates: start: 20230104
  31. PRIVIGEN [Concomitant]
     Active Substance: HUMAN IMMUNOGLOBULIN G
     Indication: Hypogammaglobulinaemia
     Route: 042
     Dates: start: 20221115, end: 20221115
  32. SEDISTRESS [Concomitant]
     Indication: Anxiety
     Route: 048
     Dates: start: 202112
  33. OXYCODONE HYDROCHLORIDE [Concomitant]
     Active Substance: OXYCODONE HYDROCHLORIDE
     Indication: Abdominal pain
     Route: 048
     Dates: start: 20221127
  34. AUGMENTIN [Concomitant]
     Active Substance: AMOXICILLIN\CLAVULANATE POTASSIUM
     Indication: Pneumonia bacterial
     Route: 048
     Dates: start: 20221214, end: 20221219
  35. CLARITHROMYCIN [Concomitant]
     Active Substance: CLARITHROMYCIN
     Indication: Pneumonia bacterial
     Route: 048
     Dates: start: 20221214, end: 20221226
  36. ZOMETA [Concomitant]
     Active Substance: ZOLEDRONIC ACID
     Indication: Hypercalcaemia
     Route: 042
     Dates: start: 20221220, end: 20221220

REACTIONS (1)
  - Malnutrition [Not Recovered/Not Resolved]

NARRATIVE: CASE EVENT DATE: 20221212
